FAERS Safety Report 22320542 (Version 7)
Quarter: 2023Q2

REPORT INFORMATION
  Report Type: Report from Study
  Country: ES (occurrence: ES)
  Receive Date: 20230515
  Receipt Date: 20230612
  Transmission Date: 20230722
  Serious: Yes (Hospitalization)
  Sender: FDA-Public Use
  Company Number: ES-ABBVIE-4765947

PATIENT
  Age: 56 Year
  Sex: Male

DRUGS (3)
  1. CARBIDOPA\LEVODOPA [Suspect]
     Active Substance: CARBIDOPA\LEVODOPA
     Indication: Parkinson^s disease
     Dosage: DOSE CHANGED
     Route: 050
     Dates: start: 202305, end: 202305
  2. CARBIDOPA\LEVODOPA [Suspect]
     Active Substance: CARBIDOPA\LEVODOPA
     Route: 050
     Dates: start: 20221207, end: 202305
  3. CARBIDOPA\LEVODOPA [Suspect]
     Active Substance: CARBIDOPA\LEVODOPA
     Dosage: DECREASED CONTINUOUS DOSE TO 3ML
     Route: 050
     Dates: start: 202305

REACTIONS (7)
  - Suicide attempt [Recovered/Resolved]
  - Dyskinesia [Unknown]
  - Stoma site infection [Not Recovered/Not Resolved]
  - Condition aggravated [Unknown]
  - Depression [Recovering/Resolving]
  - Suicide attempt [Recovering/Resolving]
  - Tremor [Not Recovered/Not Resolved]

NARRATIVE: CASE EVENT DATE: 20230507
